FAERS Safety Report 4596150-X (Version None)
Quarter: 2005Q1

REPORT INFORMATION
  Report Type: 
  Country: None (occurrence: None)
  Receive Date: 20050302
  Receipt Date: 20050221
  Transmission Date: 20050727
  Serious: Yes (Other)
  Sender: FDA-Public Use
  Company Number: GB-ROCHE-396118

PATIENT
  Age: 94 Year
  Sex: Female
  Weight: 40.6 kg

DRUGS (8)
  1. TAMIFLU [Suspect]
     Indication: INFLUENZA
     Route: 048
     Dates: start: 20050126, end: 20050204
  2. CALCICHEW D3 [Concomitant]
     Route: 065
  3. CEPHALEXIN [Concomitant]
  4. CO-CODAMOL [Concomitant]
     Dosage: DOSE REPORTED AS 8/500MG X2 QDS PRN
  5. HYPROMELLOSE [Concomitant]
     Dosage: DOSE REPORTED AS BOTH EYES PRN
     Route: 047
  6. RANITIDINE [Concomitant]
  7. SENNA [Concomitant]
     Dosage: DOSE REPORTED AS 7.5MG 1-2 NOCTE
  8. ZINC SULPHATE [Concomitant]

REACTIONS (5)
  - CHROMATURIA [None]
  - DECREASED APPETITE [None]
  - MALAISE [None]
  - PROTEINURIA [None]
  - URINE ODOUR ABNORMAL [None]
